FAERS Safety Report 5649193-9 (Version None)
Quarter: 2008Q1

REPORT INFORMATION
  Report Type: 
  Country: None (occurrence: None)
  Receive Date: 20080131
  Receipt Date: 20071026
  Transmission Date: 20080703
  Serious: Yes (Hospitalization)
  Sender: FDA-Public Use
  Company Number: US200710002427

PATIENT
  Age: 84 Year
  Sex: Male
  Weight: 109.8 kg

DRUGS (6)
  1. BYETTA [Suspect]
     Indication: TYPE 2 DIABETES MELLITUS
     Dosage: 5 UG, SUBCUTANEOUS ; 10 UG, 2/D, SUBCUTANEOUS
     Route: 058
     Dates: start: 20060101, end: 20060101
  2. BYETTA [Suspect]
     Indication: TYPE 2 DIABETES MELLITUS
     Dosage: 5 UG, SUBCUTANEOUS ; 10 UG, 2/D, SUBCUTANEOUS
     Route: 058
     Dates: start: 20060101
  3. NOVOLOG MIX 70/30 [Concomitant]
  4. LOPRESSOR [Concomitant]
  5. LISINOPRIL [Concomitant]
  6. LASIX [Concomitant]

REACTIONS (6)
  - BLOOD POTASSIUM INCREASED [None]
  - DIARRHOEA [None]
  - DYSPNOEA [None]
  - RENAL FAILURE [None]
  - STOMACH DISCOMFORT [None]
  - URINARY TRACT INFECTION [None]
